FAERS Safety Report 15371403 (Version 1)
Quarter: 2018Q3

REPORT INFORMATION
  Report Type: Spontaneous
  Country: US (occurrence: US)
  Receive Date: 20180905
  Receipt Date: 20180905
  Transmission Date: 20181010
  Serious: Yes (Life-Threatening, Hospitalization)
  Sender: FDA-Public Use
  Company Number: None

PATIENT
  Age: 35 Year
  Sex: Male
  Weight: 69.75 kg

DRUGS (3)
  1. GEODON [Suspect]
     Active Substance: ZIPRASIDONE HYDROCHLORIDE\ZIPRASIDONE MESYLATE
     Indication: AGITATION
     Route: 030
     Dates: start: 20180830, end: 20180830
  2. GEODON [Concomitant]
     Active Substance: ZIPRASIDONE HYDROCHLORIDE\ZIPRASIDONE MESYLATE
     Dates: start: 20180830, end: 20180830
  3. HALDOL [Concomitant]
     Active Substance: HALOPERIDOL
     Dates: start: 20180830, end: 20180830

REACTIONS (5)
  - Pulse absent [None]
  - Respiratory arrest [None]
  - Cardiac arrest [None]
  - Aggression [None]
  - Unresponsive to stimuli [None]

NARRATIVE: CASE EVENT DATE: 20180830
